FAERS Safety Report 6838724-9 (Version None)
Quarter: 2010Q3

REPORT INFORMATION
  Report Type: 
  Country: None (occurrence: None)
  Receive Date: 20100713
  Receipt Date: 20070622
  Transmission Date: 20110219
  Serious: No
  Sender: FDA-Public Use
  Company Number: US-PFIZER INC-2007042626

PATIENT
  Sex: Female
  Weight: 77.1 kg

DRUGS (4)
  1. CHANTIX [Suspect]
     Indication: SMOKING CESSATION THERAPY
     Dates: start: 20070416
  2. METOPROLOL TARTRATE [Concomitant]
  3. CITALOPRAM HYDROBROMIDE [Concomitant]
  4. MORPHINE SULFATE [Concomitant]

REACTIONS (12)
  - ABNORMAL BEHAVIOUR [None]
  - ASTHENIA [None]
  - COUGH [None]
  - FATIGUE [None]
  - FEELING ABNORMAL [None]
  - HEADACHE [None]
  - MALAISE [None]
  - MONONUCLEOSIS SYNDROME [None]
  - NAUSEA [None]
  - ROCKY MOUNTAIN SPOTTED FEVER [None]
  - SPEECH DISORDER [None]
  - VOMITING [None]
